FAERS Safety Report 8120899-5 (Version None)
Quarter: 2012Q1

REPORT INFORMATION
  Report Type: 
  Country: None (occurrence: None)
  Receive Date: 20120208
  Receipt Date: 20120131
  Transmission Date: 20120608
  Serious: No
  Sender: FDA-Public Use
  Company Number: NO-ELI_LILLY_AND_COMPANY-NO201201009302

PATIENT
  Age: 34 Year
  Sex: Male

DRUGS (2)
  1. VALPROATE SODIUM [Concomitant]
  2. ZYPREXA [Suspect]

REACTIONS (3)
  - LEUKOPENIA [None]
  - NEUTROPENIA [None]
  - LYMPHOPENIA [None]
